FAERS Safety Report 25427840 (Version 2)
Quarter: 2025Q3

REPORT INFORMATION
  Report Type: Spontaneous
  Country: JP (occurrence: JP)
  Receive Date: 20250612
  Receipt Date: 20250702
  Transmission Date: 20251020
  Serious: Yes (Other)
  Sender: GLAXOSMITHKLINE
  Company Number: JP-TAKEDA-2025TJP003956

PATIENT
  Sex: Female

DRUGS (4)
  1. ZEJULA [Suspect]
     Active Substance: NIRAPARIB
     Indication: Ovarian cancer
     Dosage: 200 MG, QD
  2. ZEJULA [Suspect]
     Active Substance: NIRAPARIB
  3. ZEJULA [Suspect]
     Active Substance: NIRAPARIB
  4. ZEJULA [Suspect]
     Active Substance: NIRAPARIB

REACTIONS (2)
  - Pneumothorax [Recovered/Resolved]
  - Platelet count decreased [Recovered/Resolved]
